FAERS Safety Report 6631854-6 (Version None)
Quarter: 2010Q1

REPORT INFORMATION
  Report Type: 
  Country: None (occurrence: None)
  Receive Date: 20100312
  Receipt Date: 20100301
  Transmission Date: 20100710
  Serious: No
  Sender: FDA-Public Use
  Company Number: US-B.I. PHARMACEUTICALS,INC./RIDGEFIELD-2010-BP-02545BP

PATIENT
  Sex: Male

DRUGS (13)
  1. SPIRIVA [Suspect]
     Indication: CHRONIC OBSTRUCTIVE PULMONARY DISEASE
     Dosage: 18 MCG
     Route: 055
     Dates: start: 20070101
  2. ALBUTEROL [Concomitant]
     Indication: CHRONIC OBSTRUCTIVE PULMONARY DISEASE
  3. SEREVENT [Concomitant]
     Indication: CHRONIC OBSTRUCTIVE PULMONARY DISEASE
  4. AEROBID [Concomitant]
     Indication: CHRONIC OBSTRUCTIVE PULMONARY DISEASE
  5. GUAIFENESIN [Concomitant]
     Indication: CHRONIC OBSTRUCTIVE PULMONARY DISEASE
  6. TERAZOSIN HCL [Concomitant]
     Indication: PROSTATOMEGALY
  7. EXTRA STRENGTH TYLENOL [Concomitant]
     Indication: ARTHRITIS
  8. OMEPRAZOLE [Concomitant]
     Indication: GASTROOESOPHAGEAL REFLUX DISEASE
  9. DIVALPROEX SODIUM [Concomitant]
     Indication: BIPOLAR DISORDER
  10. GABAPENTIN [Concomitant]
     Indication: NERVE COMPRESSION
  11. VITAMINS [Concomitant]
     Indication: PROPHYLAXIS
  12. WELLBUTRIN [Concomitant]
     Indication: DEPRESSION
  13. OLANZAPINE [Concomitant]
     Indication: SLEEP DISORDER

REACTIONS (2)
  - DRY MOUTH [None]
  - POLLAKIURIA [None]
